FAERS Safety Report 7897778-1 (Version None)
Quarter: 2011Q4

REPORT INFORMATION
  Report Type: 
  Country: None (occurrence: None)
  Receive Date: 20111107
  Receipt Date: 20111025
  Transmission Date: 20120403
  Serious: Yes (Disabling)
  Sender: FDA-Public Use
  Company Number: US-ROCHE-1007497

PATIENT
  Sex: Male
  Weight: 82 kg

DRUGS (6)
  1. ACTIVASE [Suspect]
     Indication: PERIPHERAL VASCULAR DISORDER
     Dosage: DOSE: 25 MG/500 ML.
     Route: 041
     Dates: start: 20110911
  2. ZOLPIDEM [Concomitant]
     Indication: PRODUCT USED FOR UNKNOWN INDICATION
     Dates: start: 20110910, end: 20110916
  3. MORPHINE [Concomitant]
     Indication: PRODUCT USED FOR UNKNOWN INDICATION
     Dates: start: 20110910, end: 20110915
  4. NS SOLUTION [Concomitant]
     Indication: PRODUCT USED FOR UNKNOWN INDICATION
     Dates: start: 20110910, end: 20110913
  5. ANCEF [Concomitant]
     Indication: PRODUCT USED FOR UNKNOWN INDICATION
     Dates: start: 20110911, end: 20110913
  6. LORAZEPAM [Concomitant]
     Indication: PRODUCT USED FOR UNKNOWN INDICATION
     Dates: start: 20110910, end: 20110916

REACTIONS (1)
  - BLOOD FIBRINOGEN INCREASED [None]
